FAERS Safety Report 8351286-2 (Version None)
Quarter: 2012Q2

REPORT INFORMATION
  Report Type: 
  Country: None (occurrence: None)
  Receive Date: 20120510
  Receipt Date: 20110527
  Transmission Date: 20120825
  Serious: No
  Sender: FDA-Public Use
  Company Number: US-TEVA-2011002715

PATIENT
  Sex: Female

DRUGS (3)
  1. NUVIGIL [Suspect]
     Indication: FATIGUE
  2. NUVIGIL [Suspect]
     Indication: SLEEP APNOEA SYNDROME
     Route: 048
  3. NUVIGIL [Suspect]
     Indication: FIBROMYALGIA

REACTIONS (1)
  - DRUG INEFFECTIVE [None]
